FAERS Safety Report 4340591-2 (Version None)
Quarter: 2004Q2

REPORT INFORMATION
  Report Type: 
  Country: None (occurrence: None)
  Receive Date: 20040414
  Receipt Date: 20040402
  Transmission Date: 20050107
  Serious: Yes (Death)
  Sender: FDA-Public Use
  Company Number: 2004-114590-NL

PATIENT
  Age: 73 Year
  Sex: Male

DRUGS (15)
  1. DANAPAROID SODIUM [Suspect]
     Indication: DISSEMINATED INTRAVASCULAR COAGULATION
     Dosage: 2500 ANTI XA
     Route: 042
     Dates: start: 20040211, end: 20040211
  2. VALPROATE SODIUM [Concomitant]
  3. SODIUM GUALENATE [Concomitant]
  4. AMLODIPINE BESYLATE [Concomitant]
  5. STREPTOCOCCUS FAECALIS [Concomitant]
  6. AMNOFLUID [Concomitant]
  7. TRIFLUID [Concomitant]
  8. MINERALIN [Concomitant]
  9. RANITIDINE HYDROCHLORIDE [Concomitant]
  10. ASPARTATE POTASSIUM [Concomitant]
  11. SOLULACT [Concomitant]
  12. ELASPOL [Concomitant]
  13. MALTOSE [Concomitant]
  14. MEROPENEM [Concomitant]
  15. KAKODIN [Concomitant]

REACTIONS (8)
  - ASPARTATE AMINOTRANSFERASE INCREASED [None]
  - BLOOD CREATININE INCREASED [None]
  - BLOOD POTASSIUM INCREASED [None]
  - DISSEMINATED INTRAVASCULAR COAGULATION [None]
  - HYPERKALAEMIA [None]
  - INTESTINAL ISCHAEMIA [None]
  - PNEUMONIA [None]
  - SEPTIC SHOCK [None]
